FAERS Safety Report 6764767-X (Version None)
Quarter: 2010Q2

REPORT INFORMATION
  Report Type: 
  Country: None (occurrence: None)
  Receive Date: 20100610
  Receipt Date: 20100604
  Transmission Date: 20101027
  Serious: Yes (Other)
  Sender: FDA-Public Use
  Company Number: HQWYE439730SEP04

PATIENT
  Sex: Female

DRUGS (3)
  1. PREMPRO [Suspect]
     Indication: HORMONE REPLACEMENT THERAPY
     Dosage: UNSPECIFIED
     Route: 048
     Dates: start: 19950101, end: 19980101
  2. PROVERA [Suspect]
     Indication: HORMONE REPLACEMENT THERAPY
     Dosage: UNSPECIFIED
     Route: 048
     Dates: start: 19950101, end: 19980101
  3. CONJUGATED ESTROGENS [Suspect]
     Indication: HORMONE REPLACEMENT THERAPY
     Dosage: UNSPECIFIED
     Route: 048
     Dates: start: 19950101, end: 19980101

REACTIONS (4)
  - BREAST CANCER IN SITU [None]
  - BREAST CANCER METASTATIC [None]
  - METASTASES TO LYMPH NODES [None]
  - OESTROGEN RECEPTOR ASSAY POSITIVE [None]
